FAERS Safety Report 6541101-1 (Version None)
Quarter: 2010Q1

REPORT INFORMATION
  Report Type: 
  Country: None (occurrence: None)
  Receive Date: 20100118
  Receipt Date: 20100112
  Transmission Date: 20100710
  Serious: Yes (Other)
  Sender: FDA-Public Use
  Company Number: US-ROCHE-587108

PATIENT
  Sex: Female
  Weight: 63.5 kg

DRUGS (7)
  1. BONIVA [Suspect]
     Indication: OSTEOPOROSIS
     Dosage: OTHER INDICATION: OSTEOPENIA (HIP)
     Route: 065
     Dates: start: 20080401
  2. BONIVA [Suspect]
     Route: 065
  3. BONIVA [Suspect]
     Dosage: DOSE: 3MG/ML, ROUTE: INJECTION, OTHER INDICATION: OSTEOPENIA (HIP)
     Route: 065
     Dates: start: 20090101
  4. ATIVAN [Concomitant]
     Indication: SLEEP DISORDER THERAPY
  5. RESTORIL [Concomitant]
     Indication: SLEEP DISORDER THERAPY
  6. VITAMIN TAB [Concomitant]
  7. CALCIUM [Concomitant]

REACTIONS (10)
  - ABDOMINAL DISCOMFORT [None]
  - ABDOMINAL PAIN [None]
  - BONE DENSITY DECREASED [None]
  - CHOLECYSTECTOMY [None]
  - FAECES DISCOLOURED [None]
  - HEADACHE [None]
  - INFLUENZA LIKE ILLNESS [None]
  - MALAISE [None]
  - NASOPHARYNGITIS [None]
  - NAUSEA [None]
